FAERS Safety Report 6324062-X (Version None)
Quarter: 2009Q3

REPORT INFORMATION
  Report Type: 
  Country: None (occurrence: None)
  Receive Date: 20090824
  Receipt Date: 20090526
  Transmission Date: 20100115
  Serious: No
  Sender: FDA-Public Use
  Company Number: US-ABBOTT-09P-163-0576147-00

PATIENT
  Sex: Female
  Weight: 59.928 kg

DRUGS (10)
  1. NIASPAN [Suspect]
     Indication: C-REACTIVE PROTEIN INCREASED
     Route: 048
     Dates: start: 20090520, end: 20090523
  2. NIASPAN [Suspect]
     Indication: BLOOD CHOLESTEROL ABNORMAL
  3. LIPITOR [Concomitant]
     Indication: ARRHYTHMIA
  4. LIPITOR [Concomitant]
     Indication: BLOOD CHOLESTEROL ABNORMAL
  5. METOPROLOL [Concomitant]
     Indication: BLOOD PRESSURE MANAGEMENT
  6. METOPROLOL [Concomitant]
     Indication: ARRHYTHMIA
  7. PREMARIN [Concomitant]
     Indication: MENOPAUSE
  8. VITAMIN B COMPLEX CAP [Concomitant]
     Indication: DRUG USE FOR UNKNOWN INDICATION
  9. VITAMIN E [Concomitant]
     Indication: DRUG USE FOR UNKNOWN INDICATION
     Dosage: 200 MG DAILY
  10. OSCAL [Concomitant]
     Indication: ARTHRITIS
     Dates: end: 19990101

REACTIONS (2)
  - LIP SWELLING [None]
  - STOMATITIS [None]
